FAERS Safety Report 9131813 (Version 4)
Quarter: 2013Q2

REPORT INFORMATION
  Report Type: Spontaneous
  Country: GB (occurrence: GB)
  Receive Date: 20130301
  Receipt Date: 20130503
  Transmission Date: 20140414
  Serious: Yes (Hospitalization, Disabling, Other)
  Sender: FDA-Public Use
  Company Number: GB-BAYER-2013-023577

PATIENT
  Age: 42 Year
  Sex: Female
  Weight: 70 kg

DRUGS (3)
  1. MIRENA [Suspect]
     Indication: CONTRACEPTION
     Dosage: 20 ?G/D, CONT
     Route: 015
     Dates: start: 20110727, end: 20121220
  2. MIRENA [Suspect]
     Indication: MENORRHAGIA
  3. LEVOTHYROXINE [Concomitant]
     Dosage: 175 MG, QD
     Route: 048

REACTIONS (39)
  - Fear [None]
  - Grand mal convulsion [None]
  - Fall [None]
  - Malaise [None]
  - Menorrhagia [None]
  - Epilepsy [None]
  - Heart rate decreased [Unknown]
  - Insomnia [Unknown]
  - Epilepsy [Recovered/Resolved with Sequelae]
  - Epilepsy [None]
  - Acne [None]
  - Loss of libido [Unknown]
  - Amenorrhoea [Recovered/Resolved]
  - Grand mal convulsion [Not Recovered/Not Resolved]
  - Musculoskeletal disorder [Not Recovered/Not Resolved]
  - Binocular eye movement disorder [Not Recovered/Not Resolved]
  - Head discomfort [Not Recovered/Not Resolved]
  - Feeling abnormal [Not Recovered/Not Resolved]
  - Fall [Not Recovered/Not Resolved]
  - Urinary incontinence [Not Recovered/Not Resolved]
  - Postictal state [None]
  - Speech disorder [None]
  - Vomiting [None]
  - Fatigue [None]
  - Nausea [None]
  - Somnolence [None]
  - Blood pressure decreased [None]
  - Limb injury [None]
  - White blood cell count increased [Unknown]
  - Convulsion [None]
  - Binocular eye movement disorder [None]
  - Tongue biting [Not Recovered/Not Resolved]
  - Urinary incontinence [None]
  - Somnolence [None]
  - Fall [None]
  - Vomiting [None]
  - Injury [None]
  - Contusion [None]
  - Panic attack [None]
